FAERS Safety Report 6091796-4 (Version None)
Quarter: 2009Q1

REPORT INFORMATION
  Report Type: 
  Country: None (occurrence: None)
  Receive Date: 20090225
  Receipt Date: 20080710
  Transmission Date: 20090719
  Serious: No
  Sender: FDA-Public Use
  Company Number: A0735359A

PATIENT
  Age: 49 Year
  Sex: Female

DRUGS (2)
  1. VALTREX [Suspect]
     Indication: HERPES SIMPLEX
     Dosage: 500MG PER DAY
     Route: 048
  2. GLUCOSAMINE [Concomitant]

REACTIONS (2)
  - BLOOD URINE PRESENT [None]
  - RENAL PAIN [None]
